FAERS Safety Report 7440721-X (Version None)
Quarter: 2011Q2

REPORT INFORMATION
  Report Type: 
  Country: None (occurrence: None)
  Receive Date: 20110427
  Receipt Date: 20110422
  Transmission Date: 20111010
  Serious: Yes (Death, Other)
  Sender: FDA-Public Use
  Company Number: US-AMGEN-US338790

PATIENT
  Age: 75 Year
  Sex: Male
  Weight: 72.562 kg

DRUGS (9)
  1. PREDNISONE [Concomitant]
     Dosage: 20 MG, QD
     Route: 048
     Dates: start: 20090113
  2. DEXAMETHASONE [Concomitant]
     Dosage: 20 MG, UNK
     Route: 065
     Dates: start: 20081021, end: 20081021
  3. DEXAMETHASONE [Concomitant]
     Dosage: 20 MG, UNK
     Route: 042
     Dates: start: 20080603
  4. NPLATE [Suspect]
     Dosage: UNK
     Dates: start: 20081021
  5. DIAZEPAM [Concomitant]
     Dosage: UNK UNK, UNK
     Route: 065
  6. NPLATE [Suspect]
     Indication: IDIOPATHIC THROMBOCYTOPENIC PURPURA
     Dosage: 140 A?G, QWK
     Route: 042
  7. NPLATE [Suspect]
     Dosage: 4 A?G/KG, UNK
     Dates: end: 20090113
  8. PREDNISONE [Concomitant]
     Dosage: 80 MG, QD
     Route: 048
     Dates: start: 20080603, end: 20081230
  9. RITUXIMAB [Concomitant]
     Dosage: 375 MG/M2, QWK
     Route: 065
     Dates: start: 20090127

REACTIONS (4)
  - THERAPEUTIC RESPONSE DECREASED [None]
  - DEATH [None]
  - FALL [None]
  - SPLENOMEGALY [None]
